FAERS Safety Report 5556269-3 (Version None)
Quarter: 2007Q4

REPORT INFORMATION
  Report Type: 
  Country: None (occurrence: None)
  Receive Date: 20071213
  Receipt Date: 20071024
  Transmission Date: 20080405
  Serious: No
  Sender: FDA-Public Use
  Company Number: US-AMGEN-KDL208252

PATIENT
  Sex: Female
  Weight: 90.3 kg

DRUGS (5)
  1. ENBREL [Suspect]
     Indication: RHEUMATOID ARTHRITIS
     Route: 058
     Dates: start: 20061211, end: 20070124
  2. PREDNISONE [Concomitant]
     Dates: start: 20061206
  3. TRAMADOL HCL [Concomitant]
     Dates: start: 20061206
  4. FOLIC ACID [Concomitant]
     Dates: start: 20050101
  5. METHOTREXATE [Concomitant]
     Dates: start: 20040101

REACTIONS (4)
  - COUGH [None]
  - DRY THROAT [None]
  - DYSPNOEA [None]
  - RHINORRHOEA [None]
